FAERS Safety Report 9315622 (Version 2)
Quarter: 2014Q3

REPORT INFORMATION
  Report Type: Spontaneous
  Country: US (occurrence: US)
  Receive Date: 20130529
  Receipt Date: 20140830
  Transmission Date: 20150326
  Serious: Yes (Hospitalization, Other)
  Sender: FDA-Public Use
  Company Number: US-009507513-1305USA016388

PATIENT
  Sex: Female
  Weight: 90.7 kg

DRUGS (1)
  1. NUVARING [Suspect]
     Active Substance: ETHINYL ESTRADIOL\ETONOGESTREL
     Indication: CONTRACEPTION
     Dosage: UNK
     Route: 067
     Dates: start: 2009, end: 20120608

REACTIONS (6)
  - Pulmonary embolism [Unknown]
  - Haematoma [Unknown]
  - Hypothyroidism [Unknown]
  - Syncope [Unknown]
  - Depression [Unknown]
  - Hypercholesterolaemia [Unknown]

NARRATIVE: CASE EVENT DATE: 20110609
